FAERS Safety Report 12118121 (Version 2)
Quarter: 2017Q3

REPORT INFORMATION
  Report Type: Spontaneous
  Country: JP (occurrence: JP)
  Receive Date: 20160226
  Receipt Date: 20170922
  Transmission Date: 20171127
  Serious: Yes (Life-Threatening, Hospitalization, Other)
  Sender: FDA-Public Use
  Company Number: JP-ACCORD-038225

PATIENT
  Age: 37 Year
  Sex: Male
  Weight: 84.4 kg

DRUGS (5)
  1. FLUOROURACIL. [Suspect]
     Active Substance: FLUOROURACIL
     Indication: ANAL CANCER STAGE IV
     Dosage: 1000MG/M(2) ON DAYS 1-4 AND 29-32)
     Route: 041
  2. EMTRICITABINE/TENOFOVIR DISOPROXIL FUMARATE [Concomitant]
     Indication: HIV INFECTION
  3. GRANULOCYTE COLONY STIMULATING [Concomitant]
     Active Substance: GRANULOCYTE COLONY-STIMULATING FACTOR NOS
  4. MITOMYCIN. [Suspect]
     Active Substance: MITOMYCIN
     Indication: ANAL CANCER STAGE IV
     Dosage: MITOMYCIN C (10MG/M(2) ON DAYS 1 AND 29)
     Route: 042
  5. RALTEGRAVIR. [Concomitant]
     Active Substance: RALTEGRAVIR
     Indication: HIV INFECTION

REACTIONS (4)
  - Thrombocytopenia [Unknown]
  - Radiation skin injury [Unknown]
  - Neutropenia [Unknown]
  - Leukopenia [Unknown]
